FAERS Safety Report 4875996-4 (Version None)
Quarter: 2005Q4

REPORT INFORMATION
  Report Type: 
  Country: None (occurrence: None)
  Receive Date: 20051207
  Receipt Date: 20050812
  Transmission Date: 20060501
  Serious: Yes (Hospitalization)
  Sender: FDA-Public Use
  Company Number: 2005-BP-13866BP

PATIENT
  Age: 67 Year
  Sex: Male

DRUGS (1)
  1. PERSANTINE [Suspect]
     Dosage: IV
     Dates: start: 20041026, end: 20041026

REACTIONS (2)
  - BRADYCARDIA [None]
  - HYPOTENSION [None]
